FAERS Safety Report 7151563-7 (Version None)
Quarter: 2010Q4

REPORT INFORMATION
  Report Type: 
  Country: None (occurrence: None)
  Receive Date: 20101126
  Receipt Date: 20101109
  Transmission Date: 20110411
  Serious: Yes (Other)
  Sender: FDA-Public Use
  Company Number: 2010-01082

PATIENT
  Age: 41 Year
  Sex: Female
  Weight: 51.7101 kg

DRUGS (2)
  1. LEVETIRACETAM TABLETS 1G (LEVETIRACETAM) [Suspect]
     Indication: CONVULSION
     Dosage: 2000 MG (2000 MG, 1 IN 1 D), PER ORAL
     Route: 048
     Dates: start: 20100801
  2. ZONISAMIDE CAP 100 MG [Concomitant]

REACTIONS (10)
  - AMNESIA [None]
  - BACK PAIN [None]
  - DIARRHOEA [None]
  - HALLUCINATION [None]
  - IRRITABILITY [None]
  - NAUSEA [None]
  - RASH [None]
  - SUICIDAL IDEATION [None]
  - VISUAL IMPAIRMENT [None]
  - WEIGHT DECREASED [None]
